FAERS Safety Report 7328807-1 (Version None)
Quarter: 2011Q1

REPORT INFORMATION
  Report Type: 
  Country: None (occurrence: None)
  Receive Date: 20110225
  Receipt Date: 20110225
  Transmission Date: 20110831
  Serious: Yes (Hospitalization, Other)
  Sender: FDA-Public Use
  Company Number: None

PATIENT
  Age: 22 Year
  Sex: Female
  Weight: 68.0396 kg

DRUGS (1)
  1. LARIAM [Suspect]
     Indication: MALARIA PROPHYLAXIS
     Dosage: 250MG WEEKLY PO
     Route: 048
     Dates: start: 20021201, end: 20030301

REACTIONS (7)
  - VOMITING [None]
  - ANXIETY [None]
  - DEPRESSION [None]
  - INSOMNIA [None]
  - HALLUCINATION, AUDITORY [None]
  - WEIGHT DECREASED [None]
  - NAUSEA [None]
